FAERS Safety Report 6779078-6 (Version None)
Quarter: 2010Q2

REPORT INFORMATION
  Report Type: 
  Country: None (occurrence: None)
  Receive Date: 20100618
  Receipt Date: 20100504
  Transmission Date: 20101027
  Serious: No
  Sender: FDA-Public Use
  Company Number: US-JNJFOC-20100501271

PATIENT
  Sex: Male
  Weight: 95.26 kg

DRUGS (5)
  1. INVEGA [Suspect]
     Indication: BIPOLAR DISORDER
     Route: 048
  2. LEXAPRO [Concomitant]
     Indication: DEPRESSION
  3. ABILIFY [Concomitant]
     Indication: DRUG THERAPY
  4. LAMICTAL [Concomitant]
     Indication: ANXIETY
  5. TRAZODONE HYDROCHLORIDE [Concomitant]
     Indication: INSOMNIA

REACTIONS (2)
  - ANXIETY [None]
  - RESTLESSNESS [None]
